FAERS Safety Report 23799507 (Version 1)
Quarter: 2024Q2

REPORT INFORMATION
  Report Type: Spontaneous
  Country: US (occurrence: US)
  Receive Date: 20240430
  Receipt Date: 20240430
  Transmission Date: 20240716
  Serious: Yes (Other)
  Sender: FDA-Public Use
  Company Number: US-MALLINCKRODT-MNK202402838

PATIENT
  Age: 22 Week

DRUGS (1)
  1. NITRIC OXIDE [Suspect]
     Active Substance: NITRIC OXIDE
     Indication: Premature baby
     Dosage: 20 PPM
     Route: 055

REACTIONS (4)
  - Bradycardia [Unknown]
  - Oxygen saturation decreased [Unknown]
  - Product use issue [Unknown]
  - Product use in unapproved indication [Unknown]
